FAERS Safety Report 5161090-4 (Version None)
Quarter: 2006Q4

REPORT INFORMATION
  Report Type: 
  Country: None (occurrence: None)
  Receive Date: 20061121
  Receipt Date: 20061109
  Transmission Date: 20070319
  Serious: Yes (Other)
  Sender: FDA-Public Use
  Company Number: T200601296

PATIENT
  Age: 12 Year
  Sex: Female

DRUGS (1)
  1. OPTIRAY 160 [Suspect]
     Dosage: 100 ML, SINGLE,

REACTIONS (2)
  - ASTHMA [None]
  - RESPIRATORY DISTRESS [None]
